FAERS Safety Report 15759396 (Version 13)
Quarter: 2021Q2

REPORT INFORMATION
  Report Type: Other
  Country: DE (occurrence: DE)
  Receive Date: 20181226
  Receipt Date: 20210419
  Transmission Date: 20210716
  Serious: Yes (Other)
  Sender: FDA-Public Use
  Company Number: DE-ROCHE-2113766

PATIENT
  Age: 40 Year
  Sex: Female

DRUGS (14)
  1. OCREVUS [Suspect]
     Active Substance: OCRELIZUMAB
     Dosage: SECOND DOSE
     Route: 042
     Dates: start: 20180426, end: 20180426
  2. OCREVUS [Suspect]
     Active Substance: OCRELIZUMAB
     Dosage: SIXTH INFUSION
     Route: 042
     Dates: start: 20200402
  3. VIGANTOL [Concomitant]
  4. FAMPYRA [Concomitant]
     Active Substance: DALFAMPRIDINE
  5. DEKRISTOL [Concomitant]
     Active Substance: CHOLECALCIFEROL
  6. ZINC. [Concomitant]
     Active Substance: ZINC
     Route: 048
  7. OCREVUS [Suspect]
     Active Substance: OCRELIZUMAB
     Route: 042
     Dates: start: 20190417
  8. CORTISONE [Suspect]
     Active Substance: CORTISONE
     Indication: PREMEDICATION
     Route: 065
  9. OCREVUS [Suspect]
     Active Substance: OCRELIZUMAB
     Indication: RELAPSING-REMITTING MULTIPLE SCLEROSIS
     Dosage: SECOND DOSE ON 26/APR/2018.
     Route: 042
     Dates: start: 20180411, end: 20180411
  10. SALBUTAMOL [Concomitant]
     Active Substance: ALBUTEROL
  11. OCREVUS [Suspect]
     Active Substance: OCRELIZUMAB
     Route: 042
     Dates: start: 20181025
  12. VIGANTOL [Concomitant]
  13. OCREVUS [Suspect]
     Active Substance: OCRELIZUMAB
     Route: 042
     Dates: start: 20191016
  14. OCREVUS [Suspect]
     Active Substance: OCRELIZUMAB
     Route: 042
     Dates: start: 20201006

REACTIONS (26)
  - Heart rate increased [Recovered/Resolved]
  - Neuralgia [Recovered/Resolved]
  - Erythema [Recovered/Resolved]
  - Intestinal obstruction [Recovered/Resolved]
  - Off label use [Unknown]
  - Bronchitis [Recovered/Resolved]
  - Herpes zoster [Recovered/Resolved]
  - Feeling hot [Recovered/Resolved]
  - Tachycardia [Recovered/Resolved]
  - Limb injury [Recovered/Resolved]
  - Temperature intolerance [Recovered/Resolved]
  - Fall [Unknown]
  - Blood pressure decreased [Recovered/Resolved]
  - Nasopharyngitis [Recovered/Resolved]
  - Cystitis noninfective [Recovered/Resolved]
  - Folate deficiency [Recovered/Resolved]
  - Fatigue [Not Recovered/Not Resolved]
  - Subcutaneous abscess [Recovered/Resolved]
  - Asthenia [Recovered/Resolved]
  - Peripheral coldness [Recovered/Resolved]
  - Malaise [Recovered/Resolved]
  - Breast mass [Not Recovered/Not Resolved]
  - Body temperature increased [Recovered/Resolved]
  - Fatigue [Recovered/Resolved]
  - Rash pruritic [Recovered/Resolved]
  - Nystagmus [Recovered/Resolved]

NARRATIVE: CASE EVENT DATE: 20180411
